FAERS Safety Report 10523596 (Version 1)
Quarter: 2014Q4

REPORT INFORMATION
  Report Type: Spontaneous
  Country: SE (occurrence: SE)
  Receive Date: 20141017
  Receipt Date: 20141017
  Transmission Date: 20150528
  Serious: Yes (Other)
  Sender: FDA-Public Use
  Company Number: SE-009507513-1410SWE007901

PATIENT
  Age: 51 Year
  Sex: Female

DRUGS (1)
  1. OVESTERIN [Suspect]
     Active Substance: ESTRIOL
     Indication: RASH PAPULAR
     Dosage: UNK
     Route: 067
     Dates: start: 20140923

REACTIONS (5)
  - Presyncope [Not Recovered/Not Resolved]
  - Vomiting [Not Recovered/Not Resolved]
  - Hyperhidrosis [Not Recovered/Not Resolved]
  - Haematuria [Not Recovered/Not Resolved]
  - Nausea [Not Recovered/Not Resolved]

NARRATIVE: CASE EVENT DATE: 20140924
